FAERS Safety Report 24556828 (Version 1)
Quarter: 2024Q4

REPORT INFORMATION
  Report Type: Report from Study
  Country: CO (occurrence: CO)
  Receive Date: 20241028
  Receipt Date: 20241028
  Transmission Date: 20250115
  Serious: Yes (Hospitalization, Other)
  Sender: BIOVITRUM
  Company Number: CO-AstraZeneca-CH-00729394A

PATIENT
  Age: 9 Month
  Sex: Female
  Weight: 5.5 kg

DRUGS (1)
  1. PALIVIZUMAB [Suspect]
     Active Substance: PALIVIZUMAB
     Indication: Respiratory disorder
     Dosage: 15 MILLIGRAM/KILOGRAM, QMONTH
     Route: 030
     Dates: start: 20240426

REACTIONS (1)
  - Retroviral infection [Unknown]

NARRATIVE: CASE EVENT DATE: 20241014
